FAERS Safety Report 5006042-X (Version None)
Quarter: 2006Q1

REPORT INFORMATION
  Report Type: 
  Country: None (occurrence: None)
  Receive Date: 20060320
  Receipt Date: 20050302
  Transmission Date: 20060701
  Serious: Yes (Disabling, Other)
  Sender: FDA-Public Use
  Company Number: 2002-11-0325

PATIENT
  Age: 47 Year
  Sex: Female
  Weight: 54.8852 kg

DRUGS (20)
  1. PEG-INTRON [Suspect]
     Indication: HEPATITIS C
     Dosage: SEE IMAGE
     Route: 058
     Dates: start: 20011126, end: 20020320
  2. PEG-INTRON [Suspect]
     Indication: HEPATITIS C
     Dosage: SEE IMAGE
     Route: 058
     Dates: start: 20011126, end: 20020510
  3. PEG-INTRON [Suspect]
     Indication: HEPATITIS C
     Dosage: SEE IMAGE
     Route: 058
     Dates: start: 20020320, end: 20020510
  4. REBETOL [Suspect]
     Indication: HEPATITIS C
     Dosage: 800 MG QD ORAL
     Route: 048
     Dates: start: 20011126, end: 20020510
  5. CELEXA [Concomitant]
  6. TRIAZOLAM [Concomitant]
  7. XANAX [Concomitant]
  8. TYLENOL (CAPLET) [Concomitant]
  9. FLEXERIL [Concomitant]
  10. WELLBUTRIN [Concomitant]
  11. AMBIEN [Concomitant]
  12. FLONASE [Concomitant]
  13. FOSAMAX [Concomitant]
  14. SUDAFED (PSEUDOEPHEDRINE HCL) [Concomitant]
  15. MEDROXYPROGESTERONE [Concomitant]
  16. VIVELLE [Concomitant]
  17. HALCION [Concomitant]
  18. VIOXX [Concomitant]
  19. ZOLOFT [Concomitant]
  20. PREVACID [Concomitant]

REACTIONS (53)
  - ANAEMIA [None]
  - ANOREXIA [None]
  - ANXIETY [None]
  - APHONIA [None]
  - ARTHRALGIA [None]
  - ASTHENIA [None]
  - ATROPHIC VULVOVAGINITIS [None]
  - BIPOLAR I DISORDER [None]
  - COLLAGEN-VASCULAR DISEASE [None]
  - CONFUSIONAL STATE [None]
  - DEMYELINATING POLYNEUROPATHY [None]
  - DIARRHOEA [None]
  - DISTURBANCE IN ATTENTION [None]
  - DIZZINESS [None]
  - DRY MOUTH [None]
  - DYSPNOEA [None]
  - ERYTHEMA [None]
  - FATIGUE [None]
  - FEELING COLD [None]
  - FIBROCYSTIC BREAST DISEASE [None]
  - FIBROMYALGIA [None]
  - GASTROENTERITIS VIRAL [None]
  - HEART RATE INCREASED [None]
  - HEPATOMEGALY [None]
  - HYPERCHLORHYDRIA [None]
  - HYPERHIDROSIS [None]
  - INFLUENZA LIKE ILLNESS [None]
  - INJECTION SITE REACTION [None]
  - INSOMNIA [None]
  - LEUKOPENIA [None]
  - LIBIDO DECREASED [None]
  - MIGRAINE [None]
  - MUSCLE ATROPHY [None]
  - MUSCLE SPASMS [None]
  - MYALGIA [None]
  - NAUSEA [None]
  - NEUTROPENIA [None]
  - NIGHTMARE [None]
  - PLANTAR FASCIITIS [None]
  - PYREXIA [None]
  - RASH [None]
  - SENSORY DISTURBANCE [None]
  - SICCA SYNDROME [None]
  - SINUS DISORDER [None]
  - SINUS OPERATION [None]
  - STOMATITIS [None]
  - SUICIDAL IDEATION [None]
  - SWELLING [None]
  - SYSTEMIC INFLAMMATORY RESPONSE SYNDROME [None]
  - TINNITUS [None]
  - VISION BLURRED [None]
  - VISUAL DISTURBANCE [None]
  - WEIGHT DECREASED [None]
